FAERS Safety Report 10673784 (Version 1)
Quarter: 2014Q4

REPORT INFORMATION
  Report Type: Spontaneous
  Country: US (occurrence: None)
  Receive Date: 20141223
  Receipt Date: 20141223
  Transmission Date: 20150529
  Serious: Yes (Life-Threatening, Hospitalization, Disabling)
  Sender: FDA-Public Use
  Company Number: None

PATIENT
  Age: 73 Year
  Sex: Female
  Weight: 54.43 kg

DRUGS (6)
  1. VITAMIN ONE-A-DAY [Concomitant]
  2. PREDNISONE. [Concomitant]
     Active Substance: PREDNISONE
  3. FORTEO [Suspect]
     Active Substance: TERIPARATIDE
     Indication: OSTEOPOROSIS
     Dosage: SELF-INJECTION INTO ABDOMEN.?INJECTION
     Dates: start: 20141015, end: 20141105
  4. FLUPHENAZINE [Concomitant]
     Active Substance: FLUPHENAZINE
  5. DESIPRAMINE [Concomitant]
     Active Substance: DESIPRAMINE
  6. PRILOSEC [Concomitant]
     Active Substance: OMEPRAZOLE MAGNESIUM

REACTIONS (7)
  - Temporal arteritis [None]
  - Muscle spasms [None]
  - Headache [None]
  - Oral disorder [None]
  - Movement disorder [None]
  - Pharyngeal disorder [None]
  - Eating disorder [None]

NARRATIVE: CASE EVENT DATE: 20141016
